FAERS Safety Report 9828234 (Version 1)
Quarter: 2014Q1

REPORT INFORMATION
  Report Type: Spontaneous
  Country: US (occurrence: US)
  Receive Date: 20140117
  Receipt Date: 20140117
  Transmission Date: 20141002
  Serious: Yes (Other)
  Sender: FDA-Public Use
  Company Number: US-TEVA-456545USA

PATIENT
  Age: 36 Year
  Sex: Female
  Weight: 55.39 kg

DRUGS (2)
  1. PARAGARD 380A [Suspect]
     Indication: CONTRACEPTION
     Route: 015
     Dates: start: 20030612, end: 20140113
  2. PARAGARD 380A [Suspect]
     Route: 015
     Dates: start: 20140113, end: 20140113

REACTIONS (3)
  - Complication of device removal [Recovered/Resolved]
  - Pelvic pain [Recovered/Resolved]
  - Expired device used [Recovered/Resolved]
